FAERS Safety Report 19742979 (Version 1)
Quarter: 2021Q3

REPORT INFORMATION
  Report Type: Spontaneous
  Country: DE (occurrence: FI)
  Receive Date: 20210824
  Receipt Date: 20210824
  Transmission Date: 20211014
  Serious: Yes (Other)
  Sender: FDA-Public Use
  Company Number: FI-ENDO PHARMACEUTICALS INC-2021-011271

PATIENT
  Age: 46 Year
  Sex: Male

DRUGS (1)
  1. AVEED [Suspect]
     Active Substance: TESTOSTERONE UNDECANOATE
     Indication: PRODUCT USED FOR UNKNOWN INDICATION
     Dosage: 1 DF, ONCE
     Route: 065
     Dates: start: 20210803, end: 20210803

REACTIONS (4)
  - Urinary retention [Recovered/Resolved]
  - Renal pain [Unknown]
  - Back pain [Unknown]
  - Injection site pain [Recovered/Resolved]

NARRATIVE: CASE EVENT DATE: 20210803
